FAERS Safety Report 4551936-2 (Version None)
Quarter: 2004Q4

REPORT INFORMATION
  Report Type: 
  Country: None (occurrence: None)
  Receive Date: 20041217
  Receipt Date: 20040825
  Transmission Date: 20050328
  Serious: No
  Sender: FDA-Public Use
  Company Number: 2004-BP-07265BP

PATIENT
  Sex: Male
  Weight: 75.8 kg

DRUGS (10)
  1. SPIRIVA [Suspect]
     Indication: CHRONIC OBSTRUCTIVE AIRWAYS DISEASE
     Dosage: 18 MCG (18MCG), IH
     Route: 055
     Dates: start: 20040701
  2. CARDIZEM [Concomitant]
  3. UNIPHYL [Concomitant]
  4. HYTHEN [Concomitant]
  5. ALPRAZOLAM [Concomitant]
  6. ZOLOFT [Concomitant]
  7. SEREVENT [Concomitant]
  8. ADVAIR (SERETIDE MITE) [Concomitant]
  9. XANAX [Concomitant]
  10. VENTOLIN [Concomitant]

REACTIONS (1)
  - FACIAL PALSY [None]
